FAERS Safety Report 20027237 (Version 1)
Quarter: 2021Q4

REPORT INFORMATION
  Report Type: Spontaneous
  Country: US (occurrence: US)
  Receive Date: 20211103
  Receipt Date: 20211103
  Transmission Date: 20220303
  Serious: No
  Sender: FDA-Public Use
  Company Number: US-CIPLA LTD.-2021US03087

PATIENT

DRUGS (7)
  1. RALOXIFENE [Suspect]
     Active Substance: RALOXIFENE
     Indication: Bone disorder
     Dosage: UNK
     Route: 065
     Dates: start: 2020
  2. RALOXIFENE [Suspect]
     Active Substance: RALOXIFENE
     Indication: Prophylaxis
  3. TRIAMTERENE [Concomitant]
     Active Substance: TRIAMTERENE
     Indication: Diuretic therapy
     Dosage: 37.5/25 MG
     Route: 065
     Dates: start: 1997
  4. LIPITOR [Concomitant]
     Active Substance: ATORVASTATIN CALCIUM
     Indication: Blood cholesterol abnormal
     Dosage: 20 MG
     Route: 065
     Dates: start: 1997
  5. TYLENOL [Concomitant]
     Active Substance: ACETAMINOPHEN
     Indication: Hypertension
     Dosage: 25 MG
     Route: 065
     Dates: start: 1997
  6. PHENOBARBITAL [Concomitant]
     Active Substance: PHENOBARBITAL
     Indication: Epigastric discomfort
     Dosage: UNK
     Route: 065
     Dates: start: 1997
  7. SUMATRIPTAN [Concomitant]
     Active Substance: SUMATRIPTAN
     Indication: Muscle relaxant therapy
     Dosage: UNK
     Route: 065
     Dates: start: 1960

REACTIONS (4)
  - Hypersensitivity [Unknown]
  - Pruritus [Not Recovered/Not Resolved]
  - Product storage error [Unknown]
  - Product physical issue [Unknown]

NARRATIVE: CASE EVENT DATE: 20210101
